FAERS Safety Report 21239073 (Version 1)
Quarter: 2022Q3

REPORT INFORMATION
  Report Type: Spontaneous
  Country: US (occurrence: US)
  Receive Date: 20220822
  Receipt Date: 20220822
  Transmission Date: 20221027
  Serious: Yes (Other)
  Sender: FDA-Public Use
  Company Number: US-SA-SAC20220817002374

PATIENT
  Age: 49 Year
  Sex: Male

DRUGS (2)
  1. ZANTAC [Suspect]
     Active Substance: RANITIDINE HYDROCHLORIDE
     Indication: Dyspepsia
     Dosage: 75 MG QD
     Dates: start: 199501, end: 200301
  2. ZANTAC [Suspect]
     Active Substance: RANITIDINE HYDROCHLORIDE
     Indication: Hyperchlorhydria

REACTIONS (4)
  - Bladder cancer stage IV [Recovering/Resolving]
  - Renal cancer stage IV [Recovering/Resolving]
  - Hepatic cancer stage IV [Recovering/Resolving]
  - Prostate cancer stage IV [Recovering/Resolving]

NARRATIVE: CASE EVENT DATE: 19960101
